FAERS Safety Report 9170098 (Version 1)
Quarter: 2013Q1

REPORT INFORMATION
  Report Type: Spontaneous
  Country: AU (occurrence: None)
  Receive Date: 20130311
  Receipt Date: 20130311
  Transmission Date: 20140127
  Serious: Yes (Hospitalization)
  Sender: FDA-Public Use
  Company Number: NSR_01053_2013

PATIENT
  Age: 40 Year
  Sex: Female
  Weight: 64 kg

DRUGS (2)
  1. TRAMADOL [Suspect]
     Indication: PAIN
     Dosage: (4 TO 6 100 MG TABLETS PER DAY)   (NIL TO 3 TABLETS, PER DAY)
  2. METHADONE (METHADONE) [Suspect]
     Indication: DRUG ABUSE
     Dosage: (PROGRESSIVELY INCREASED TO 280 MG, PER DAY ORAL)

REACTIONS (2)
  - Narcotic bowel syndrome [None]
  - Irritable bowel syndrome [None]
